FAERS Safety Report 7093386-3 (Version None)
Quarter: 2010Q4

REPORT INFORMATION
  Report Type: 
  Country: None (occurrence: None)
  Receive Date: 20101110
  Receipt Date: 20101027
  Transmission Date: 20110411
  Serious: Yes (Other)
  Sender: FDA-Public Use
  Company Number: PHHY2010AU74517

PATIENT
  Sex: Female

DRUGS (10)
  1. CLOZARIL [Suspect]
     Dosage: UNK
     Dates: start: 20010306
  2. CLOZARIL [Suspect]
     Dosage: 75 MG, QD
     Dates: start: 20010312
  3. CLOZARIL [Suspect]
     Dosage: 150 MG, QD
     Dates: start: 20010319
  4. CLOZARIL [Suspect]
     Dosage: 200 MG, QD
     Dates: start: 20010326
  5. CLOZARIL [Suspect]
     Dosage: 387.5 MG, QD
     Dates: start: 20010402
  6. CLOZARIL [Suspect]
     Dosage: 475 MG, QD
     Dates: start: 20010416
  7. CLOZARIL [Suspect]
     Dosage: 500 MG, QD
     Dates: start: 20010423
  8. CLOZARIL [Suspect]
     Dosage: 250 MG, QD
     Dates: end: 20020904
  9. CLOPINE [Suspect]
     Dosage: 250 MG, QD
     Dates: start: 20021002, end: 20090814
  10. CLOPINE [Suspect]
     Dosage: UNK
     Dates: start: 20100914

REACTIONS (1)
  - POSTPARTUM DEPRESSION [None]
